FAERS Safety Report 6525644-2 (Version None)
Quarter: 2010Q1

REPORT INFORMATION
  Report Type: 
  Country: None (occurrence: None)
  Receive Date: 20100104
  Receipt Date: 20091228
  Transmission Date: 20100710
  Serious: Yes (Other)
  Sender: FDA-Public Use
  Company Number: US-AMGEN-QUU378188

PATIENT
  Sex: Female
  Weight: 44.1 kg

DRUGS (11)
  1. EPOGEN [Suspect]
     Indication: RENAL FAILURE CHRONIC
     Route: 065
  2. CALCITRIOL [Concomitant]
     Route: 048
  3. MIRALAX [Concomitant]
  4. POTASSIUM CHLORIDE [Concomitant]
  5. CALCIUM CARBONATE [Concomitant]
  6. ACETAMINOPHEN [Concomitant]
     Route: 048
  7. ERGOCALCIFEROL [Concomitant]
     Route: 048
  8. NEPHRO-VITE [Concomitant]
     Route: 048
  9. NIFEREX [Concomitant]
     Route: 048
  10. ISRADIPINE [Concomitant]
     Route: 048
  11. SEVELAMER [Concomitant]
     Route: 048

REACTIONS (1)
  - THERAPEUTIC RESPONSE DECREASED [None]
